FAERS Safety Report 16089941 (Version 1)
Quarter: 2019Q1

REPORT INFORMATION
  Report Type: Report from Study
  Country: IT (occurrence: IT)
  Receive Date: 20190319
  Receipt Date: 20190319
  Transmission Date: 20190418
  Serious: Yes (Other)
  Sender: FDA-Public Use
  Company Number: IT-MYLANLABS-2019M1024470

PATIENT
  Age: 37 Year
  Sex: Female

DRUGS (1)
  1. ESCITALOPRAM [Suspect]
     Active Substance: ESCITALOPRAM OXALATE
     Indication: PRODUCT USED FOR UNKNOWN INDICATION
     Dosage: 7.5 MILLILITER, TOTAL
     Route: 048
     Dates: start: 20181022, end: 20181022

REACTIONS (5)
  - Drug abuse [Recovered/Resolved]
  - Vomiting [Recovered/Resolved]
  - Intentional self-injury [Recovered/Resolved]
  - Intentional product misuse [Unknown]
  - Nausea [Recovered/Resolved]

NARRATIVE: CASE EVENT DATE: 20181022
